FAERS Safety Report 6150928-X (Version None)
Quarter: 2009Q2

REPORT INFORMATION
  Report Type: 
  Country: None (occurrence: None)
  Receive Date: 20090408
  Receipt Date: 20090324
  Transmission Date: 20091009
  Serious: Yes (Life-Threatening)
  Sender: FDA-Public Use
  Company Number: 2009S1005391

PATIENT
  Age: 85 Year
  Sex: Female

DRUGS (11)
  1. CARVEDILOL [Suspect]
     Indication: CARDIAC FAILURE
     Dosage: 6.25 MG; TWICE A DAY; ORAL
     Route: 048
     Dates: start: 20081107, end: 20081214
  2. ENALAPRIL MALEATE [Suspect]
     Indication: CARDIAC FAILURE
     Dosage: 2.5 MG; ORAL
     Route: 048
     Dates: start: 20081107, end: 20081214
  3. NOVONORM (REPAGLINIDE) [Suspect]
     Indication: TYPE 2 DIABETES MELLITUS
     Dosage: 2 MG; ORAL
     Route: 048
     Dates: start: 20000101, end: 20081214
  4. NOVOMIX (NO PREF. NAME) [Suspect]
     Indication: TYPE 2 DIABETES MELLITUS
     Dosage: SUBCUTANEOUS
     Route: 058
     Dates: start: 20000101, end: 20081214
  5. LANTUS [Suspect]
     Indication: TYPE 2 DIABETES MELLITUS
     Dosage: 16 IU; SUBCUTANEOUS
     Route: 058
     Dates: start: 20000101
  6. DIGITOXIN TAB [Concomitant]
  7. L-THYROXINE /00068001/ [Concomitant]
  8. TORASEMIDE [Concomitant]
  9. SPIRONOLACTONE [Concomitant]
  10. OMEPRAZOLE [Concomitant]
  11. ALLOPURINOL [Concomitant]

REACTIONS (5)
  - DRUG INTERACTION [None]
  - HYPERTENSION [None]
  - HYPERURICAEMIA [None]
  - HYPOGLYCAEMIA [None]
  - UNRESPONSIVE TO STIMULI [None]
